FAERS Safety Report 5296834-4 (Version None)
Quarter: 2007Q2

REPORT INFORMATION
  Report Type: 
  Country: None (occurrence: None)
  Receive Date: 20070413
  Receipt Date: 20070402
  Transmission Date: 20071010
  Serious: Yes (Other)
  Sender: FDA-Public Use
  Company Number: PHEH2007US04067

PATIENT
  Sex: Female

DRUGS (1)
  1. ZELNORM [Suspect]
     Dates: start: 20051201, end: 20070330

REACTIONS (1)
  - MYOCARDIAL INFARCTION [None]
